FAERS Safety Report 6252472-8 (Version None)
Quarter: 2009Q2

REPORT INFORMATION
  Report Type: 
  Country: None (occurrence: None)
  Receive Date: 20090629
  Receipt Date: 20090629
  Transmission Date: 20091009
  Serious: Yes (Disabling)
  Sender: FDA-Public Use
  Company Number: None

PATIENT
  Sex: Female
  Weight: 68.0396 kg

DRUGS (2)
  1. ZICAM COLD REMEDY SWAB [Suspect]
     Indication: NASOPHARYNGITIS
     Dosage: SPRAY TWICE A MONTH NOSE
     Dates: start: 20030901, end: 20050501
  2. ZICAM SPRAY [Suspect]

REACTIONS (1)
  - PAROSMIA [None]
